FAERS Safety Report 9453996 (Version 3)
Quarter: 2014Q2

REPORT INFORMATION
  Report Type: Spontaneous
  Country: US (occurrence: US)
  Receive Date: 20130812
  Receipt Date: 20140404
  Transmission Date: 20141212
  Serious: Yes (Other)
  Sender: FDA-Public Use
  Company Number: US-PFIZER INC-2013232025

PATIENT
  Age: 92 Year
  Sex: Female

DRUGS (2)
  1. LYRICA [Suspect]
     Dosage: 75 MG, UNK
  2. LYRICA [Suspect]
     Dosage: 50 MG, UNK

REACTIONS (9)
  - Cardiac disorder [Unknown]
  - Renal disorder [Unknown]
  - Hypertension [Unknown]
  - Mental impairment [Unknown]
  - Somnolence [Unknown]
  - Gait disturbance [Unknown]
  - Balance disorder [Unknown]
  - Hallucination [Unknown]
  - Hypokinesia [Unknown]
